FAERS Safety Report 24138998 (Version 1)
Quarter: 2024Q3

REPORT INFORMATION
  Report Type: Spontaneous
  Country: US (occurrence: US)
  Receive Date: 20240726
  Receipt Date: 20240726
  Transmission Date: 20241016
  Serious: Yes (Hospitalization)
  Sender: STRIDES
  Company Number: None

PATIENT

DRUGS (5)
  1. IBUPROFEN [Suspect]
     Active Substance: IBUPROFEN
     Indication: Postoperative analgesia
     Dosage: 600 MILLIGRAM, EVERY 6 HRS (TAKING 600 MG IBUPROFEN EVERY 6 H ALTERNATING WITH 1 G ACETAMINOPHEN EVE
     Route: 065
  2. ACETAMINOPHEN [Concomitant]
     Active Substance: ACETAMINOPHEN
     Indication: Postoperative analgesia
     Dosage: 1 GRAM, EVERY 6 HRS (TAKING 600 MG IBUPROFEN EVERY) 6 H ALTERNATING WITH 1 G ACETAMINOPHEN EVERY 6 H
     Route: 065
  3. AZITHROMYCIN [Concomitant]
     Active Substance: AZITHROMYCIN
     Indication: Infection prophylaxis
     Dosage: UNK
     Route: 065
  4. CEFAZOLIN [Concomitant]
     Active Substance: CEFAZOLIN
     Indication: Infection prophylaxis
     Dosage: UNK
     Route: 065
  5. OXYCODONE [Concomitant]
     Active Substance: OXYCODONE
     Indication: Breakthrough pain
     Dosage: 5 MILLIGRAM, PRN (5 MG OXYCODONE EVERY 4 H IF NEEDED)
     Route: 065

REACTIONS (5)
  - Anaemia [Unknown]
  - Peptic ulcer [Recovered/Resolved]
  - Duodenal ulcer [Recovered/Resolved]
  - Gastric ulcer [Recovered/Resolved]
  - Upper gastrointestinal haemorrhage [Recovered/Resolved]
